FAERS Safety Report 25408761 (Version 1)
Quarter: 2025Q2

REPORT INFORMATION
  Report Type: Spontaneous
  Country: SK (occurrence: SK)
  Receive Date: 20250607
  Receipt Date: 20250607
  Transmission Date: 20250716
  Serious: Yes (Hospitalization, Other)
  Sender: CELLTRION
  Company Number: SK-ABBVIE-6042210

PATIENT

DRUGS (2)
  1. ADALIMUMAB [Suspect]
     Active Substance: ADALIMUMAB
     Indication: Rheumatoid arthritis
     Route: 058
  2. METHYLPREDNISOLONE [Concomitant]
     Active Substance: METHYLPREDNISOLONE
     Indication: Product used for unknown indication

REACTIONS (6)
  - Polyarthritis [Not Recovered/Not Resolved]
  - Inflammatory marker increased [Recovering/Resolving]
  - Tendonitis [Unknown]
  - Rheumatoid arthritis [Unknown]
  - Pyrexia [Unknown]
  - Osteomyelitis [Unknown]
